FAERS Safety Report 8790759 (Version 2)
Quarter: 2012Q4

REPORT INFORMATION
  Report Type: Spontaneous
  Country: SE (occurrence: None)
  Receive Date: 20120907
  Receipt Date: 20120917
  Transmission Date: 20130627
  Serious: Yes (Death, Hospitalization, Other)
  Sender: FDA-Public Use
  Company Number: EU-2012-10225

PATIENT
  Age: 90 Year
  Sex: Female

DRUGS (8)
  1. SAMSCA (TOLVAPTAN) TABLET [Suspect]
     Route: 048
     Dates: start: 20120810, end: 20120810
  2. NACL (NACL) [Concomitant]
  3. FURIX (FUROSEMIDE) [Concomitant]
  4. TROMBYL (ACETYLSALICYLIC ACID) [Concomitant]
  5. POTASSIUM (POTASSIUM) [Concomitant]
  6. ENALAPRIL (ENALAPRIL) [Concomitant]
  7. METOPROLOL (METOPROLOL) [Concomitant]
  8. PANODIL (PARACETAMOL) [Concomitant]

REACTIONS (6)
  - Hyponatraemia [None]
  - Loss of consciousness [None]
  - General physical health deterioration [None]
  - Fatigue [None]
  - Dehydration [None]
  - Wrong technique in drug usage process [None]
